FAERS Safety Report 9598253 (Version 1)
Quarter: 2013Q4

REPORT INFORMATION
  Report Type: Spontaneous
  Country: US (occurrence: US)
  Receive Date: 20131004
  Receipt Date: 20131004
  Transmission Date: 20140711
  Serious: No
  Sender: FDA-Public Use
  Company Number: US-AMGEN-USASP2013022972

PATIENT
  Age: 50 Year
  Sex: Female
  Weight: 136.5 kg

DRUGS (16)
  1. ENBREL [Suspect]
     Indication: PRODUCT USED FOR UNKNOWN INDICATION
     Dosage: 50 MG, QWK
     Route: 058
     Dates: start: 200608
  2. BENICAR [Concomitant]
     Dosage: 5 MG, UNK
  3. CARDIZEM                           /00489701/ [Concomitant]
     Dosage: 30 MG, UNK
  4. BUMETANIDE [Concomitant]
     Dosage: 1 MG, UNK
  5. METOPROLOL [Concomitant]
     Dosage: 50 MG, UNK (ER)
  6. ACID REDUCER                       /00397401/ [Concomitant]
     Dosage: 10 MG, UNK
  7. ZYRTEC [Concomitant]
     Dosage: 5 MG, UNK
  8. PEPTO-BISMOL [Concomitant]
     Dosage: (SUS 525/15) UNK
  9. TYLENOL                            /00020001/ [Concomitant]
     Dosage: 325 MG, UNK
  10. MOTRIN [Concomitant]
     Dosage: 600 MG, UNK
  11. ALEVE [Concomitant]
     Dosage: 220 MG, UNK
  12. IMODIUM ADVANCED [Concomitant]
     Dosage: UNK
  13. VITAMIN B 12 [Concomitant]
     Dosage: 5000 MUG, UNK
     Route: 060
  14. BIOTIN [Concomitant]
     Dosage: 5 MG, UNK
  15. TACROLIMUS [Concomitant]
     Dosage: 1 MG, UNK
  16. CORDRAN [Concomitant]
     Dosage: 0.05 %, UNK

REACTIONS (2)
  - Skin ulcer [Unknown]
  - Alopecia [Unknown]
